FAERS Safety Report 4319865-7 (Version None)
Quarter: 2004Q1

REPORT INFORMATION
  Report Type: 
  Country: None (occurrence: None)
  Receive Date: 20040316
  Receipt Date: 20040305
  Transmission Date: 20041129
  Serious: Yes (Hospitalization)
  Sender: FDA-Public Use
  Company Number: US047833

PATIENT
  Age: 71 Year
  Sex: Female

DRUGS (7)
  1. ENBREL [Suspect]
     Indication: RHEUMATOID ARTHRITIS
     Dosage: 25 MG, TWICE WEEKLY, SC
     Route: 058
     Dates: start: 20000101
  2. ASPIRIN [Concomitant]
  3. ANTIHYPERTENSIVE MEDICATION NOS [Concomitant]
  4. LORSARTAN POTASSIUM HYDROCHLORIDE [Concomitant]
  5. ATORVASTATIN CALCIUM [Concomitant]
  6. METOPROLOL SUCCINATE [Concomitant]
  7. CELECOXIB [Concomitant]

REACTIONS (7)
  - ANGINA PECTORIS [None]
  - CORONARY ARTERY REOCCLUSION [None]
  - CORONARY ARTERY STENOSIS [None]
  - LOCALISED INFECTION [None]
  - LUNG NEOPLASM [None]
  - MYOCARDIAL ISCHAEMIA [None]
  - PULMONARY GRANULOMA [None]
